FAERS Safety Report 16449680 (Version 1)
Quarter: 2019Q2

REPORT INFORMATION
  Report Type: Spontaneous
  Country: FR (occurrence: FR)
  Receive Date: 20190619
  Receipt Date: 20190619
  Transmission Date: 20190711
  Serious: Yes (Other)
  Sender: FDA-Public Use
  Company Number: FR-AUROBINDO-AUR-APL-2019-034364

PATIENT

DRUGS (1)
  1. PERINDOPRIL [Suspect]
     Active Substance: PERINDOPRIL
     Indication: HYPERTENSION
     Dosage: 5 MILLIGRAM, DAILY
     Route: 048
     Dates: start: 20170515, end: 20190425

REACTIONS (3)
  - Headache [Recovered/Resolved]
  - Arthralgia [Recovered/Resolved]
  - Erectile dysfunction [Recovered/Resolved]

NARRATIVE: CASE EVENT DATE: 201811
